FAERS Safety Report 7037727-1 (Version None)
Quarter: 2010Q4

REPORT INFORMATION
  Report Type: 
  Country: None (occurrence: None)
  Receive Date: 20101011
  Receipt Date: 20101001
  Transmission Date: 20110411
  Serious: Yes (Death, Other)
  Sender: FDA-Public Use
  Company Number: GXKR2010JP11153

PATIENT
  Age: 78 Year
  Sex: Female
  Weight: 40 kg

DRUGS (4)
  1. SULFAMETHOXAZOLE AND TRIMETHOPRIM [Suspect]
     Indication: ACUTE ENDOCARDITIS
     Dosage: 160 MG/KG, Q8H (10 MG/KG/DAY)
     Route: 042
  2. PIPERACILLIN+TAZOBACTAM (NGX) [Suspect]
     Indication: STENOTROPHOMONAS INFECTION
     Route: 065
  3. CIPROFLOXACIN [Suspect]
     Indication: ACUTE ENDOCARDITIS
     Route: 065
  4. MINOCYCLINE HCL [Suspect]
     Indication: ACUTE ENDOCARDITIS
     Route: 065

REACTIONS (6)
  - DECREASED APPETITE [None]
  - DRUG INEFFECTIVE [None]
  - NAUSEA [None]
  - PANCREATITIS [None]
  - PANCYTOPENIA [None]
  - RENAL IMPAIRMENT [None]
